FAERS Safety Report 11096679 (Version 2)
Quarter: 2015Q2

REPORT INFORMATION
  Report Type: Spontaneous
  Country: JP (occurrence: JP)
  Receive Date: 20150507
  Receipt Date: 20150615
  Transmission Date: 20150821
  Serious: Yes (Other)
  Sender: FDA-Public Use
  Company Number: JP-TEVA-560516ISR

PATIENT

DRUGS (6)
  1. VITAMIN B12 [Concomitant]
     Active Substance: CYANOCOBALAMIN
     Dosage: STARTING 1 WEEK PRIOR TO DAY 1 OF CYCLE 1 AND REPEATED EVERY 9 WEEKS UNTIL THE TREATMENT ENDED
     Route: 030
  2. DEXAMETHASONE 00016002 [Concomitant]
     Route: 065
  3. FOLATE [Concomitant]
     Active Substance: FOLATE SODIUM
     Dosage: 500 MILLIGRAM DAILY; BEGINNING 1 WEEK PRIOR TO DAY 1 OF CYCLE 1 UNTIL STUDY DISCONTINUATION
     Route: 065
  4. PEMETREXED [Suspect]
     Active Substance: PEMETREXED
     Indication: PLEURAL MESOTHELIOMA MALIGNANT
     Dosage: 500 MG/M2 ON DAY 1 EVERY 3 WEEKS FOR A MAXIMUM OF 6 CYCLES
     Route: 042
  5. METOCLOPRAMIDE. [Concomitant]
     Active Substance: METOCLOPRAMIDE
     Route: 065
  6. CISPLATIN. [Suspect]
     Active Substance: CISPLATIN
     Indication: PLEURAL MESOTHELIOMA MALIGNANT
     Dosage: 75 MG/M2 ON DAY 1 EVERY 3 WEEKS FOR A MAXIMUM OF 6 CYCLES
     Route: 042

REACTIONS (2)
  - Performance status decreased [Unknown]
  - Infection [Unknown]
